FAERS Safety Report 4684824-1 (Version None)
Quarter: 2005Q2

REPORT INFORMATION
  Report Type: 
  Country: None (occurrence: None)
  Receive Date: 20050531
  Receipt Date: 20041222
  Transmission Date: 20051028
  Serious: Yes (Hospitalization)
  Sender: FDA-Public Use
  Company Number: USA041286842

PATIENT
  Sex: Male

DRUGS (3)
  1. ZYPREXA [Suspect]
     Indication: MENTAL DISORDER
     Dosage: 25 MG DAY
  2. PROZAC [Concomitant]
  3. KLONOPIN [Concomitant]

REACTIONS (4)
  - DEPRESSION [None]
  - EMOTIONAL DISTRESS [None]
  - GLUCOSE TOLERANCE IMPAIRED [None]
  - PRESCRIBED OVERDOSE [None]
